FAERS Safety Report 8567362-5 (Version None)
Quarter: 2012Q3

REPORT INFORMATION
  Report Type: 
  Country: None (occurrence: None)
  Receive Date: 20120803
  Receipt Date: 20120731
  Transmission Date: 20120928
  Serious: Yes (Hospitalization, Other)
  Sender: FDA-Public Use
  Company Number: PHHO2010EE10851

PATIENT
  Sex: Male
  Weight: 98 kg

DRUGS (18)
  1. ENALAPRIL MALEATE [Suspect]
     Indication: CARDIAC FAILURE
     Dosage: CODE NOT BROKEN
     Route: 048
     Dates: start: 20100203
  2. ISOPTIN [Concomitant]
     Dosage: 120 MG, X 1
     Dates: start: 20120211
  3. ALLOPURINOL [Concomitant]
     Indication: RENAL FAILURE CHRONIC
  4. SOLU-MEDROL [Concomitant]
     Indication: RENAL FAILURE CHRONIC
  5. WARFARIN SODIUM [Concomitant]
     Dosage: 3-9 MG ACCORDING TO INR
     Dates: start: 20091012
  6. CALCIORAN [Concomitant]
  7. MEDROL [Concomitant]
     Indication: RENAL FAILURE CHRONIC
  8. METOPROLOL TARTRATE [Concomitant]
     Dosage: 50 MG, UNK
     Dates: start: 20110211
  9. BLINDED ALISKIREN [Suspect]
     Indication: CARDIAC FAILURE
     Dosage: CODE NOT BROKEN
     Route: 048
     Dates: start: 20100203
  10. MEDOPAL [Concomitant]
  11. TORSEMIDE [Concomitant]
  12. CRESTOR [Concomitant]
     Indication: DYSLIPIDAEMIA
  13. ROSUVASTATIN [Concomitant]
     Dosage: 20 MG, X 1
     Dates: start: 20120211
  14. BLINDED NO TREATMENT RECEIVED [Suspect]
     Indication: CARDIAC FAILURE
     Dosage: CODE NOT BROKEN
     Route: 048
     Dates: start: 20100203
  15. LASIX [Concomitant]
     Indication: CARDIAC FAILURE CHRONIC
     Dosage: UNK
  16. LASIX [Concomitant]
     Indication: OEDEMA PERIPHERAL
  17. CALCIGRAN [Concomitant]
     Indication: RENAL FAILURE CHRONIC
  18. METFORMIN HCL [Concomitant]
     Dosage: 850 MG, UNK
     Dates: start: 20110105

REACTIONS (10)
  - NEPHROTIC SYNDROME [None]
  - CARDIAC FAILURE CHRONIC [None]
  - HYPERTENSION [None]
  - RENAL FAILURE CHRONIC [None]
  - OEDEMA PERIPHERAL [None]
  - BLOOD CHOLESTEROL INCREASED [None]
  - GLUCOSE TOLERANCE IMPAIRED [None]
  - PROTEIN URINE PRESENT [None]
  - CONCOMITANT DISEASE PROGRESSION [None]
  - BLOOD ALBUMIN DECREASED [None]
